FAERS Safety Report 6666348-5 (Version None)
Quarter: 2010Q2

REPORT INFORMATION
  Report Type: 
  Country: None (occurrence: None)
  Receive Date: 20100402
  Receipt Date: 20100331
  Transmission Date: 20101027
  Serious: Yes (Hospitalization, Disabling)
  Sender: FDA-Public Use
  Company Number: US-ELI_LILLY_AND_COMPANY-US201004000118

PATIENT
  Sex: Female

DRUGS (9)
  1. HUMALOG [Suspect]
     Indication: DIABETES MELLITUS
     Dosage: 35 U, EACH MORNING
     Dates: start: 20030101
  2. HUMALOG [Suspect]
     Dosage: 35 U, OTHER
     Dates: start: 20030101
  3. HUMALOG [Suspect]
     Dosage: 35 U, EACH EVENING
     Dates: start: 20030101
  4. HUMALOG [Suspect]
     Dosage: UNK, AS NEEDED
     Dates: start: 20030101
  5. HUMALOG [Suspect]
     Dosage: 35 U, EACH MORNING
     Dates: start: 20030101
  6. HUMALOG [Suspect]
     Dosage: 35 U, OTHER
     Dates: start: 20030101
  7. HUMALOG [Suspect]
     Dosage: 35 U, EACH EVENING
     Dates: start: 20030101
  8. HUMALOG [Suspect]
     Dosage: UNK, AS NEEDED
     Dates: start: 20030101
  9. LANTUS [Concomitant]

REACTIONS (4)
  - BLOOD CHOLESTEROL INCREASED [None]
  - DISABILITY [None]
  - MAJOR DEPRESSION [None]
  - MYOCARDIAL INFARCTION [None]
